FAERS Safety Report 20866361 (Version 1)
Quarter: 2022Q2

REPORT INFORMATION
  Report Type: Report from Study
  Country: CA (occurrence: CA)
  Receive Date: 20220524
  Receipt Date: 20220524
  Transmission Date: 20220720
  Serious: Yes (Death, Other)
  Sender: FDA-Public Use
  Company Number: CA-BRISTOL-MYERS SQUIBB COMPANY-2022-043772

PATIENT
  Age: 42 Year
  Sex: Female
  Weight: 78.2 kg

DRUGS (2)
  1. ABRAXANE [Suspect]
     Active Substance: PACLITAXEL
     Indication: Triple negative breast cancer
     Dosage: Q 3 WEEKS
     Route: 042
     Dates: start: 20220303
  2. SYNTHROID [Concomitant]
     Active Substance: LEVOTHYROXINE SODIUM
     Indication: COVID-19
     Dosage: SYNTHROID, RECEIVED COVID-19 X 3 DOSES (MOST RECENT: 10-FEB-2022)
     Dates: start: 20220210

REACTIONS (2)
  - Death [Fatal]
  - Prescribed underdose [Unknown]

NARRATIVE: CASE EVENT DATE: 20220317
